FAERS Safety Report 24797234 (Version 1)
Quarter: 2025Q1

REPORT INFORMATION
  Report Type: Report from Study
  Country: US (occurrence: US)
  Receive Date: 20250101
  Receipt Date: 20250101
  Transmission Date: 20250408
  Serious: Yes (Hospitalization)
  Sender: ABBVIE
  Company Number: US-ABBVIE-6065786

PATIENT
  Age: 44 Year
  Sex: Male

DRUGS (2)
  1. SKYRIZI [Suspect]
     Active Substance: RISANKIZUMAB-RZAA
     Indication: Crohn^s disease
     Dosage: 360 MG
     Route: 058
     Dates: start: 20240726
  2. SKYRIZI [Suspect]
     Active Substance: RISANKIZUMAB-RZAA
     Indication: Crohn^s disease
     Route: 042

REACTIONS (7)
  - Haemorrhage [Recovering/Resolving]
  - Injection site urticaria [Unknown]
  - Vomiting [Unknown]
  - Diarrhoea [Unknown]
  - Device issue [Not Recovered/Not Resolved]
  - Injection site vesicles [Unknown]
  - Infusion site mass [Recovered/Resolved]

NARRATIVE: CASE EVENT DATE: 20240101
